FAERS Safety Report 19004896 (Version 1)
Quarter: 2021Q1

REPORT INFORMATION
  Report Type: Spontaneous
  Country: US (occurrence: US)
  Receive Date: 20210312
  Receipt Date: 20210312
  Transmission Date: 20210420
  Serious: Yes (Hospitalization, Other)
  Sender: FDA-Public Use
  Company Number: US-PFIZER INC-2021233609

PATIENT
  Age: 50 Year
  Sex: Female

DRUGS (2)
  1. SULFAMETHOXAZOLE/TRIMETHOPRIM [Suspect]
     Active Substance: SULFAMETHOXAZOLE\TRIMETHOPRIM
     Indication: NASOPHARYNGITIS
     Dosage: 2 DF, SINGLE
  2. SULFAMETHOXAZOLE/TRIMETHOPRIM [Suspect]
     Active Substance: SULFAMETHOXAZOLE\TRIMETHOPRIM
     Dosage: SHE FREQUENTLY TOOK TMP?SMX

REACTIONS (5)
  - Dermatitis bullous [Recovered/Resolved]
  - Toxic epidermal necrolysis [Recovered/Resolved]
  - Prescription drug used without a prescription [Recovered/Resolved]
  - Stevens-Johnson syndrome [Recovered/Resolved]
  - Fixed eruption [Recovered/Resolved]
